FAERS Safety Report 13948163 (Version 2)
Quarter: 2018Q1

REPORT INFORMATION
  Report Type: Spontaneous
  Country: HK (occurrence: HK)
  Receive Date: 20170908
  Receipt Date: 20180323
  Transmission Date: 20180508
  Serious: Yes (Hospitalization, Other)
  Sender: FDA-Public Use
  Company Number: HK-ACCORD-058218

PATIENT
  Age: 34 Week
  Sex: Male

DRUGS (2)
  1. CHLORPHENAMINE [Suspect]
     Active Substance: CHLORPHENIRAMINE MALEATE
     Route: 064
  2. AMITRIPTYLINE [Suspect]
     Active Substance: AMITRIPTYLINE
     Route: 064

REACTIONS (5)
  - Premature baby [Unknown]
  - Bradycardia foetal [Recovering/Resolving]
  - Overdose [Unknown]
  - Foetal exposure during pregnancy [Unknown]
  - Hypotonia [Unknown]
